FAERS Safety Report 4312041-3 (Version None)
Quarter: 2004Q1

REPORT INFORMATION
  Report Type: 
  Country: None (occurrence: None)
  Receive Date: 20040305
  Receipt Date: 20040227
  Transmission Date: 20041129
  Serious: Yes (Other)
  Sender: FDA-Public Use
  Company Number: PHBS2004CH02787

PATIENT
  Age: 79 Year
  Sex: Female

DRUGS (5)
  1. CO-DIOVAN [Suspect]
     Dosage: VALS 160 / HCT 12.5 MG/DAY
     Route: 048
     Dates: start: 20040108, end: 20040128
  2. ATENOLOL [Concomitant]
     Dosage: 100 MG/DAY
     Dates: start: 20031014
  3. OMEPRAZOLE [Concomitant]
     Dosage: 20 MG/DAY
     Dates: start: 20031209
  4. LEFAX [Concomitant]
     Dosage: 84-126 MG/DAY
     Dates: start: 20030101
  5. MEFENAMIC ACID [Concomitant]
     Dosage: 1000 MG/DAY
     Dates: start: 20031209

REACTIONS (2)
  - ARTHRALGIA [None]
  - ARTHRITIS [None]
